FAERS Safety Report 14935132 (Version 1)
Quarter: 2018Q2

REPORT INFORMATION
  Report Type: Spontaneous
  Country: US (occurrence: US)
  Receive Date: 20180524
  Receipt Date: 20180524
  Transmission Date: 20180711
  Serious: Yes (Other)
  Sender: FDA-Public Use
  Company Number: US-TEVA-2018-US-895041

PATIENT
  Age: 8 Decade
  Sex: Male

DRUGS (4)
  1. ACITRETIN. [Concomitant]
     Active Substance: ACITRETIN
     Indication: DERMATITIS PSORIASIFORM
     Route: 065
  2. METHOTREXATE. [Suspect]
     Active Substance: METHOTREXATE
     Indication: DERMATITIS PSORIASIFORM
     Route: 065
  3. BEXAROTENE. [Suspect]
     Active Substance: BEXAROTENE
     Indication: MYCOSIS FUNGOIDES STAGE III
     Route: 048
  4. ROMIDEPSIN. [Suspect]
     Active Substance: ROMIDEPSIN
     Indication: MYCOSIS FUNGOIDES STAGE III
     Dosage: INFUSION (RECEIVED 6 COURSES)
     Route: 050

REACTIONS (3)
  - Lymphoproliferative disorder [Recovered/Resolved]
  - Hypertriglyceridaemia [Unknown]
  - Nausea [Unknown]
